FAERS Safety Report 17063391 (Version 5)
Quarter: 2020Q3

REPORT INFORMATION
  Report Type: Report from Study
  Country: FR (occurrence: FR)
  Receive Date: 20191122
  Receipt Date: 20200825
  Transmission Date: 20201102
  Serious: Yes (Other)
  Sender: FDA-Public Use
  Company Number: NVSC2019FR042220

PATIENT
  Age: 66 Year
  Sex: Female
  Weight: 58 kg

DRUGS (34)
  1. ADOPORT [Suspect]
     Active Substance: TACROLIMUS
     Dosage: 4 MG
     Route: 048
     Dates: start: 20190415
  2. ADOPORT [Suspect]
     Active Substance: TACROLIMUS
     Dosage: 2.5 MG
     Route: 048
     Dates: start: 20190418
  3. ADOPORT [Suspect]
     Active Substance: TACROLIMUS
     Dosage: 5.5 MG
     Route: 048
     Dates: start: 20190425
  4. ADOPORT [Suspect]
     Active Substance: TACROLIMUS
     Dosage: UNK
     Route: 048
     Dates: start: 20190816
  5. MYFORTIC [Concomitant]
     Active Substance: MYCOPHENOLATE SODIUM
     Dosage: 180 MG, BID
     Route: 065
     Dates: start: 20190809, end: 20190816
  6. FUROSEMIDE. [Concomitant]
     Active Substance: FUROSEMIDE
     Indication: PRODUCT USED FOR UNKNOWN INDICATION
     Dosage: UNK
     Route: 065
     Dates: start: 20190417
  7. LANSOPRAZOLE. [Concomitant]
     Active Substance: LANSOPRAZOLE
     Indication: PRODUCT USED FOR UNKNOWN INDICATION
     Dosage: UNK
     Route: 065
     Dates: start: 20190415, end: 20190425
  8. SODIUM BICARBONATE. [Concomitant]
     Active Substance: SODIUM BICARBONATE
     Indication: PRODUCT USED FOR UNKNOWN INDICATION
     Dosage: UNK
     Route: 065
     Dates: start: 20190415, end: 20190426
  9. CINACALCET. [Concomitant]
     Active Substance: CINACALCET
     Indication: PRODUCT USED FOR UNKNOWN INDICATION
     Dosage: UNK
     Route: 065
     Dates: start: 20190415
  10. DARBEPOETIN ALFA [Concomitant]
     Active Substance: DARBEPOETIN ALFA
     Indication: PRODUCT USED FOR UNKNOWN INDICATION
     Dosage: UNK
     Route: 065
     Dates: start: 20190415
  11. ADOPORT [Suspect]
     Active Substance: TACROLIMUS
     Indication: RENAL TRANSPLANT
     Dosage: 5.5 MG
     Route: 048
     Dates: start: 20190415
  12. ADOPORT [Suspect]
     Active Substance: TACROLIMUS
     Dosage: 2.5 MG
     Route: 048
     Dates: start: 20190423
  13. ADOPORT [Suspect]
     Active Substance: TACROLIMUS
     Dosage: 5.5 MG
     Route: 048
     Dates: start: 20190916
  14. MYFORTIC [Concomitant]
     Active Substance: MYCOPHENOLATE SODIUM
     Indication: PROPHYLAXIS
     Dosage: UNK
     Route: 065
     Dates: start: 20190414
  15. ADOPORT [Suspect]
     Active Substance: TACROLIMUS
     Dosage: 3.5 MG
     Route: 048
     Dates: start: 20190417
  16. ADOPORT [Suspect]
     Active Substance: TACROLIMUS
     Dosage: 6.0 MG
     Route: 048
     Dates: start: 20190426, end: 20190505
  17. ADOPORT [Suspect]
     Active Substance: TACROLIMUS
     Dosage: 7.0 MG
     Route: 048
     Dates: start: 20190505, end: 20190510
  18. MYFORTIC [Concomitant]
     Active Substance: MYCOPHENOLATE SODIUM
     Dosage: 360 MG, BID
     Route: 065
     Dates: start: 20190617, end: 20190810
  19. ROVALCYTE [Concomitant]
     Active Substance: VALGANCICLOVIR HYDROCHLORIDE
     Indication: ANTIVIRAL PROPHYLAXIS
     Dosage: 450 MG, BID
     Route: 065
     Dates: start: 20190729, end: 20190809
  20. CORTANCYL [Concomitant]
     Active Substance: PREDNISONE
     Indication: PRODUCT USED FOR UNKNOWN INDICATION
     Dosage: UNK
     Route: 065
     Dates: start: 20190513
  21. ADOPORT [Suspect]
     Active Substance: TACROLIMUS
     Dosage: 1.5 MG
     Route: 048
     Dates: start: 20190421
  22. ADOPORT [Suspect]
     Active Substance: TACROLIMUS
     Dosage: 2.0 MG
     Route: 048
     Dates: start: 20190422
  23. ADOPORT [Suspect]
     Active Substance: TACROLIMUS
     Dosage: 8.5 MG
     Route: 048
     Dates: start: 20190415
  24. ADOPORT [Suspect]
     Active Substance: TACROLIMUS
     Dosage: 1.0 MG
     Route: 048
     Dates: start: 20190419
  25. ADOPORT [Suspect]
     Active Substance: TACROLIMUS
     Dosage: 7.0 MG
     Route: 048
     Dates: start: 20190430
  26. ADOPORT [Suspect]
     Active Substance: TACROLIMUS
     Dosage: 7.5 MG
     Route: 048
     Dates: start: 20190510
  27. POTASSIUM CHLORIDE. [Concomitant]
     Active Substance: POTASSIUM CHLORIDE
     Indication: PRODUCT USED FOR UNKNOWN INDICATION
     Dosage: UNK
     Route: 065
     Dates: start: 20190423
  28. BACTRIM [Concomitant]
     Active Substance: SULFAMETHOXAZOLE\TRIMETHOPRIM
     Indication: PROPHYLAXIS
     Dosage: 400 MG
     Route: 065
     Dates: start: 20190419, end: 20190419
  29. ROVALCYTE [Concomitant]
     Active Substance: VALGANCICLOVIR HYDROCHLORIDE
     Dosage: 450 MG
     Route: 065
     Dates: start: 20190809, end: 20190822
  30. ADOPORT [Suspect]
     Active Substance: TACROLIMUS
     Dosage: 3 MG
     Route: 048
     Dates: start: 20190415, end: 20190417
  31. ADOPORT [Suspect]
     Active Substance: TACROLIMUS
     Dosage: 0.5 MG
     Route: 048
     Dates: start: 20190420
  32. ADOPORT [Suspect]
     Active Substance: TACROLIMUS
     Dosage: 3.5 MG
     Route: 048
     Dates: start: 20190424
  33. MYFORTIC [Concomitant]
     Active Substance: MYCOPHENOLATE SODIUM
     Indication: IMMUNOSUPPRESSANT DRUG THERAPY
     Dosage: 360 MG
     Route: 065
     Dates: start: 20190519, end: 20190527
  34. VALGANCICLOVIR. [Concomitant]
     Active Substance: VALGANCICLOVIR
     Indication: PRODUCT USED FOR UNKNOWN INDICATION
     Dosage: UNK
     Route: 065
     Dates: start: 20190423

REACTIONS (12)
  - Hypokalaemia [Recovered/Resolved]
  - Thrombocytopenia [Recovering/Resolving]
  - Anaemia [Recovering/Resolving]
  - Leukopenia [Not Recovered/Not Resolved]
  - Tremor [Recovered/Resolved]
  - Haemorrhoids [Recovered/Resolved]
  - Leukopenia [Recovered/Resolved]
  - Hypertension [Recovering/Resolving]
  - Dysuria [Recovered/Resolved]
  - Eyelid oedema [Recovered/Resolved]
  - Leukopenia [Recovered/Resolved]
  - Leukopenia [Recovered/Resolved]

NARRATIVE: CASE EVENT DATE: 20190415
